FAERS Safety Report 20037146 (Version 1)
Quarter: 2021Q4

REPORT INFORMATION
  Report Type: Spontaneous
  Country: US (occurrence: US)
  Receive Date: 20211105
  Receipt Date: 20211105
  Transmission Date: 20220303
  Serious: Yes (Other)
  Sender: FDA-Public Use
  Company Number: US-BIOGEN-2021BI01063681

PATIENT
  Age: 23 Year
  Sex: Male

DRUGS (1)
  1. VUMERITY [Suspect]
     Active Substance: DIROXIMEL FUMARATE
     Indication: Product used for unknown indication
     Route: 048
     Dates: start: 20210825

REACTIONS (5)
  - Anaphylactic reaction [Unknown]
  - Dyspnoea [Unknown]
  - Sinus disorder [Unknown]
  - Pharyngeal inflammation [Unknown]
  - Wheezing [Unknown]

NARRATIVE: CASE EVENT DATE: 20210901
